FAERS Safety Report 10577170 (Version 1)
Quarter: 2014Q4

REPORT INFORMATION
  Report Type: Spontaneous
  Country: CN (occurrence: CN)
  Receive Date: 20141111
  Receipt Date: 20141111
  Transmission Date: 20150529
  Serious: Yes (Hospitalization, Other)
  Sender: FDA-Public Use
  Company Number: CN-B.I. PHARMACEUTICALS,INC./RIDGEFIELD-2014-BI-53964YA

PATIENT
  Age: 84 Year
  Sex: Female

DRUGS (2)
  1. HARNAL [Suspect]
     Active Substance: TAMSULOSIN HYDROCHLORIDE
     Indication: DYSURIA
     Dosage: 0.2 MG
     Route: 048
     Dates: start: 20141014, end: 20141014
  2. HARNAL [Suspect]
     Active Substance: TAMSULOSIN HYDROCHLORIDE
     Indication: URINARY TRACT INFECTION

REACTIONS (7)
  - Hypotension [Unknown]
  - Tinnitus [Unknown]
  - Off label use [Recovered/Resolved]
  - Shock [Recovered/Resolved]
  - Tachycardia [Unknown]
  - Cerebral circulatory failure [Unknown]
  - Dizziness [Unknown]

NARRATIVE: CASE EVENT DATE: 20141014
